FAERS Safety Report 21178497 (Version 2)
Quarter: 2022Q3

REPORT INFORMATION
  Report Type: Report from Study
  Country: FR (occurrence: FR)
  Receive Date: 20220805
  Receipt Date: 20220908
  Transmission Date: 20221027
  Serious: Yes (Death)
  Sender: FDA-Public Use
  Company Number: FR-NOVARTISPH-NVSC2022FR176035

PATIENT
  Sex: Male

DRUGS (2)
  1. CAPMATINIB [Suspect]
     Active Substance: CAPMATINIB
     Indication: Non-small cell lung cancer stage IV
     Dosage: 800 MG, QD
     Route: 065
     Dates: start: 20200127
  2. CAPMATINIB [Suspect]
     Active Substance: CAPMATINIB
     Dosage: 400 MG, QD
     Route: 065
     Dates: start: 20200403, end: 20220310

REACTIONS (1)
  - Acute respiratory failure [Fatal]
